FAERS Safety Report 21709409 (Version 1)
Quarter: 2022Q4

REPORT INFORMATION
  Report Type: Report from Study
  Country: US (occurrence: US)
  Receive Date: 20221210
  Receipt Date: 20221210
  Transmission Date: 20230113
  Serious: No
  Sender: FDA-Public Use
  Company Number: US-ABBVIE-4187096

PATIENT
  Sex: Female

DRUGS (2)
  1. HUMIRA [Suspect]
     Active Substance: ADALIMUMAB
     Indication: Ankylosing spondylitis
     Route: 058
  2. CORTISONE [Suspect]
     Active Substance: CORTISONE
     Indication: Plantar fasciitis
     Dosage: CORTISONE SHOT
     Route: 065

REACTIONS (1)
  - Plantar fasciitis [Unknown]
